FAERS Safety Report 4362206-X (Version None)
Quarter: 2004Q2

REPORT INFORMATION
  Report Type: 
  Country: None (occurrence: None)
  Receive Date: 20040517
  Receipt Date: 20040504
  Transmission Date: 20050107
  Serious: Yes (Death, Life-Threatening)
  Sender: FDA-Public Use
  Company Number: 04GER0032

PATIENT
  Sex: Female

DRUGS (6)
  1. AGGRASTAT [Suspect]
     Indication: CORONARY ARTERY THROMBOSIS
     Dosage: 14 ML/HR, INTRAVENOUS
     Route: 042
     Dates: start: 20040312, end: 20040313
  2. HEPARIN [Suspect]
     Dosage: 900 IU/HR
  3. ASPIRIN [Suspect]
     Dosage: 100 MG/DAILY
  4. CLOPIDOGREL BISULFATE [Suspect]
     Dosage: 75 MG/DAILY
  5. CARVEDILOL [Concomitant]
  6. METAMIZOLE SODIUM [Concomitant]

REACTIONS (1)
  - CEREBRAL HAEMORRHAGE [None]
